FAERS Safety Report 5832677-8 (Version None)
Quarter: 2008Q3

REPORT INFORMATION
  Report Type: 
  Country: None (occurrence: None)
  Receive Date: 20080730
  Receipt Date: 20080721
  Transmission Date: 20090109
  Serious: Yes (Hospitalization)
  Sender: FDA-Public Use
  Company Number: FRP08000643

PATIENT
  Age: 71 Year
  Sex: Female
  Weight: 58 kg

DRUGS (6)
  1. ACTONEL [Suspect]
     Indication: OSTEOPOROSIS
     Dosage: 35 MG, 1 /WEEK, ORAL; 35 MG, 1 /WEEK, ORAL
     Route: 048
     Dates: start: 20080206, end: 20080213
  2. ACTONEL [Suspect]
     Indication: OSTEOPOROSIS
     Dosage: 35 MG, 1 /WEEK, ORAL; 35 MG, 1 /WEEK, ORAL
     Route: 048
     Dates: start: 20080618, end: 20080618
  3. ARIMIDEX [Concomitant]
  4. LEVOTHYROXINE SODIUM [Concomitant]
  5. FENOFIBRATE [Concomitant]
  6. CALPEROS D3 (CALCIUM CARBONATE, COLECALCIFEROL) [Concomitant]

REACTIONS (6)
  - ABDOMINAL PAIN UPPER [None]
  - BILIARY COLIC [None]
  - CHOLECYSTITIS [None]
  - CHOLELITHIASIS [None]
  - INFLUENZA LIKE ILLNESS [None]
  - PYREXIA [None]
